FAERS Safety Report 15631037 (Version 1)
Quarter: 2018Q4

REPORT INFORMATION
  Report Type: Spontaneous
  Country: US (occurrence: US)
  Receive Date: 20181119
  Receipt Date: 20181119
  Transmission Date: 20190205
  Serious: Yes (Hospitalization)
  Sender: FDA-Public Use
  Company Number: US-BRISTOL-MYERS SQUIBB COMPANY-BMS-2018-105607

PATIENT
  Age: 52 Year
  Sex: Female
  Weight: 91.62 kg

DRUGS (1)
  1. OPDIVO [Suspect]
     Active Substance: NIVOLUMAB
     Indication: HEPATIC CANCER
     Dosage: UNK UNK, Q2WK
     Route: 042
     Dates: start: 20181010, end: 201810

REACTIONS (4)
  - Fatigue [Unknown]
  - Dyspnoea [Unknown]
  - Hypotension [Unknown]
  - Hyperhidrosis [Unknown]

NARRATIVE: CASE EVENT DATE: 20181024
